FAERS Safety Report 18251892 (Version 1)
Quarter: 2020Q3

REPORT INFORMATION
  Report Type: Report from Study
  Country: US (occurrence: US)
  Receive Date: 20200910
  Receipt Date: 20200910
  Transmission Date: 20201103
  Serious: Yes (Other)
  Sender: FDA-Public Use
  Company Number: US-PFIZER INC-2020349719

PATIENT

DRUGS (3)
  1. EPINEPHRINE. [Suspect]
     Active Substance: EPINEPHRINE
     Indication: ANAESTHESIA
     Dosage: UNK. (1:125000)
  2. XYLOCAINE [Suspect]
     Active Substance: LIDOCAINE HYDROCHLORIDE
     Indication: ANAESTHESIA
     Dosage: 20 ML. OF 1.5 PERCENT LIDOCAINE (300 MG.)
  3. PONTOCAINE [Suspect]
     Active Substance: TETRACAINE HYDROCHLORIDE
     Indication: ANAESTHESIA
     Dosage: 40 MG

REACTIONS (2)
  - Spinal vascular disorder [Unknown]
  - Paralysis [Unknown]
